FAERS Safety Report 7723168-8 (Version None)
Quarter: 2011Q3

REPORT INFORMATION
  Report Type: 
  Country: None (occurrence: None)
  Receive Date: 20110901
  Receipt Date: 20110826
  Transmission Date: 20111222
  Serious: Yes (Disabling)
  Sender: FDA-Public Use
  Company Number: FR-ASTELLAS-2011EU005810

PATIENT
  Sex: Female

DRUGS (4)
  1. PROGRAF [Suspect]
     Indication: LIVER TRANSPLANT
  2. PROGRAF [Suspect]
     Indication: RENAL TRANSPLANT
     Dosage: 5 MG, UNKNOWN/D
     Route: 048
  3. TACROLIMUS [Suspect]
     Indication: LIVER TRANSPLANT
  4. TACROLIMUS [Suspect]
     Indication: RENAL TRANSPLANT
     Dosage: 5 MG, UNKNOWN/D
     Route: 065
     Dates: start: 20110818

REACTIONS (1)
  - ADVERSE DRUG REACTION [None]
